FAERS Safety Report 7864240-1 (Version None)
Quarter: 2011Q4

REPORT INFORMATION
  Report Type: 
  Country: None (occurrence: None)
  Receive Date: 20111028
  Receipt Date: 20111027
  Transmission Date: 20120403
  Serious: Yes (Life-Threatening, Hospitalization)
  Sender: FDA-Public Use
  Company Number: ES-PFIZER INC-2011261816

PATIENT
  Age: 97 Year
  Sex: Female

DRUGS (6)
  1. COROPRES [Concomitant]
     Indication: CARDIAC FAILURE
     Dosage: UNK
     Dates: start: 20110125, end: 20110611
  2. CANDESARTAN CILEXETIL [Interacting]
     Indication: HYPERTENSION
     Dosage: UNK
     Route: 065
     Dates: start: 20110125, end: 20110611
  3. ASPIRIN [Concomitant]
     Indication: CARDIOVASCULAR EVENT PROPHYLAXIS
     Dosage: UNK
     Dates: start: 20110125, end: 20110611
  4. PLAVIX [Concomitant]
     Indication: CARDIOVASCULAR EVENT PROPHYLAXIS
     Dosage: UNK
     Dates: start: 20110125, end: 20110611
  5. ALDACTONE [Suspect]
     Indication: CARDIAC FAILURE
     Dosage: 25 MG, 1X/DAY
     Route: 048
     Dates: start: 20110125, end: 20110611
  6. DIGOXIN [Concomitant]
     Indication: ATRIAL FIBRILLATION
     Dosage: UNK
     Dates: start: 20110125, end: 20110611

REACTIONS (4)
  - HYPOTENSION [None]
  - DRUG INTERACTION [None]
  - HYPERKALAEMIA [None]
  - ATRIOVENTRICULAR BLOCK SECOND DEGREE [None]
